FAERS Safety Report 6618805-5 (Version None)
Quarter: 2010Q1

REPORT INFORMATION
  Report Type: 
  Country: None (occurrence: None)
  Receive Date: 20100304
  Receipt Date: 20100304
  Transmission Date: 20100710
  Serious: No
  Sender: FDA-Public Use
  Company Number: None

PATIENT
  Age: 38 Year
  Sex: Female
  Weight: 106.1417 kg

DRUGS (2)
  1. KLONOPIN [Suspect]
     Indication: ANXIETY
     Dosage: 1 MG 2 TABS QHS - 1/2 TAB IN PM
     Dates: start: 20081107
  2. KLONOPIN [Suspect]
     Indication: DEPRESSION
     Dosage: 1 MG 2 TABS QHS - 1/2 TAB IN PM
     Dates: start: 20081107

REACTIONS (2)
  - PRODUCT SUBSTITUTION ISSUE [None]
  - THERAPEUTIC RESPONSE DECREASED [None]
